FAERS Safety Report 24428450 (Version 1)
Quarter: 2024Q4

REPORT INFORMATION
  Report Type: Spontaneous
  Country: US (occurrence: US)
  Receive Date: 20241011
  Receipt Date: 20241011
  Transmission Date: 20250115
  Serious: No
  Sender: PFIZER
  Company Number: US-PFIZER INC-PV202400131908

PATIENT
  Age: 24 Year
  Sex: Male

DRUGS (2)
  1. CIBINQO [Suspect]
     Active Substance: ABROCITINIB
     Indication: Dermatitis atopic
     Dosage: 100 MG, 1X/DAY
     Route: 048
     Dates: start: 20230623
  2. RINVOQ [Concomitant]
     Active Substance: UPADACITINIB
     Dosage: 15 MG

REACTIONS (1)
  - Drug ineffective [Not Recovered/Not Resolved]
